FAERS Safety Report 16583065 (Version 1)
Quarter: 2019Q3

REPORT INFORMATION
  Report Type: Spontaneous
  Country: DE (occurrence: DE)
  Receive Date: 20190717
  Receipt Date: 20190717
  Transmission Date: 20191004
  Serious: Yes (Other)
  Sender: FDA-Public Use
  Company Number: DE-AUROBINDO-AUR-APL-2019-040344

PATIENT

DRUGS (1)
  1. SERTRALINE [Suspect]
     Active Substance: SERTRALINE HYDROCHLORIDE
     Indication: PRODUCT USED FOR UNKNOWN INDICATION
     Dosage: 100 MILLIGRAM
     Route: 048
     Dates: start: 20190116

REACTIONS (7)
  - Headache [Not Recovered/Not Resolved]
  - Nausea [Unknown]
  - Mania [Not Recovered/Not Resolved]
  - Nightmare [Not Recovered/Not Resolved]
  - Rash [Not Recovered/Not Resolved]
  - Suicidal behaviour [Recovered/Resolved]
  - Mood swings [Not Recovered/Not Resolved]

NARRATIVE: CASE EVENT DATE: 201901
